FAERS Safety Report 20126718 (Version 1)
Quarter: 2021Q4

REPORT INFORMATION
  Report Type: Spontaneous
  Country: US (occurrence: None)
  Receive Date: 20211128
  Receipt Date: 20211128
  Transmission Date: 20220304
  Serious: No
  Sender: FDA-Public Use
  Company Number: None

PATIENT
  Age: 37 Year
  Sex: Female
  Weight: 96.75 kg

DRUGS (1)
  1. SECRET COOL WATERLILY INVISIBLE [Suspect]
     Active Substance: ALUMINUM ZIRCONIUM TETRACHLOROHYDREX GLY
     Indication: Personal hygiene
     Dosage: FREQUENCY : TWICE A DAY;?
     Route: 061
     Dates: start: 20210916, end: 20211128

REACTIONS (2)
  - Rash [None]
  - Recalled product administered [None]

NARRATIVE: CASE EVENT DATE: 20211128
